FAERS Safety Report 7494188-6 (Version None)
Quarter: 2011Q2

REPORT INFORMATION
  Report Type: 
  Country: None (occurrence: None)
  Receive Date: 20110520
  Receipt Date: 20110510
  Transmission Date: 20111010
  Serious: Yes (Other)
  Sender: FDA-Public Use
  Company Number: GB-JNJFOC-20110506285

PATIENT
  Sex: Female

DRUGS (1)
  1. DOXORUBICIN HYDROCHLORIDE [Suspect]
     Indication: OVARIAN CANCER
     Route: 042

REACTIONS (4)
  - INFUSION RELATED REACTION [None]
  - ANAPHYLACTOID REACTION [None]
  - TREMOR [None]
  - RESPIRATORY DISORDER [None]
